FAERS Safety Report 7534001-1 (Version None)
Quarter: 2011Q2

REPORT INFORMATION
  Report Type: 
  Country: None (occurrence: None)
  Receive Date: 20110608
  Receipt Date: 20060720
  Transmission Date: 20111010
  Serious: Yes (Death)
  Sender: FDA-Public Use
  Company Number: PHHO2006HU11741

PATIENT
  Age: 48 Year
  Sex: Male

DRUGS (4)
  1. STEROIDS NOS [Concomitant]
  2. ZOCOR [Concomitant]
  3. LESCOL XL [Suspect]
     Dosage: 80 MG, QD
     Route: 048
  4. SIROLIMUS [Concomitant]

REACTIONS (1)
  - DEATH [None]
